FAERS Safety Report 18724361 (Version 1)
Quarter: 2021Q1

REPORT INFORMATION
  Report Type: Spontaneous
  Country: US (occurrence: US)
  Receive Date: 20210111
  Receipt Date: 20210111
  Transmission Date: 20210419
  Serious: Yes (Hospitalization)
  Sender: FDA-Public Use
  Company Number: None

PATIENT
  Age: 72 Year
  Sex: Male
  Weight: 146.96 kg

DRUGS (1)
  1. APIXABAN (APIXABAN 5MG TAB) [Suspect]
     Active Substance: APIXABAN
     Indication: ATRIAL FIBRILLATION
     Route: 048
     Dates: end: 20191218

REACTIONS (5)
  - Chest pain [None]
  - Anaemia [None]
  - Gastric haemorrhage [None]
  - Melaena [None]
  - Dyspnoea exertional [None]

NARRATIVE: CASE EVENT DATE: 20191218
